FAERS Safety Report 15979812 (Version 1)
Quarter: 2019Q1

REPORT INFORMATION
  Report Type: Spontaneous
  Country: US (occurrence: US)
  Receive Date: 20190219
  Receipt Date: 20190219
  Transmission Date: 20190418
  Serious: No
  Sender: FDA-Public Use
  Company Number: US-MYLANLABS-2019M1011015

PATIENT
  Sex: Female
  Weight: 45.35 kg

DRUGS (1)
  1. ESTRADIOL VAGINAL CREAM USP [Suspect]
     Active Substance: ESTRADIOL
     Indication: HORMONE REPLACEMENT THERAPY
     Dosage: UNK, 3XW
     Route: 067
     Dates: end: 20190201

REACTIONS (1)
  - Vulvovaginal burning sensation [Not Recovered/Not Resolved]
